FAERS Safety Report 8668146 (Version 5)
Quarter: 2013Q4

REPORT INFORMATION
  Report Type: Spontaneous
  Country: US (occurrence: US)
  Receive Date: 20120717
  Receipt Date: 20131101
  Transmission Date: 20140711
  Serious: Yes (Hospitalization, Other)
  Sender: FDA-Public Use
  Company Number: US-009507513-2011SP043793

PATIENT
  Sex: Female
  Weight: 58.97 kg

DRUGS (3)
  1. NUVARING [Suspect]
     Indication: DYSMENORRHOEA
     Dosage: 0.120 MG/0.015 MG PER DAY
     Route: 067
     Dates: start: 200208, end: 200703
  2. NUVARING [Suspect]
     Indication: PROPHYLAXIS
     Dosage: 0.120 MG/0.015 MG PER DAY
     Route: 067
     Dates: start: 20070427, end: 200909
  3. METABOLIFE 356 [Concomitant]
     Indication: ROUTINE HEALTH MAINTENANCE
     Dosage: UNK
     Dates: start: 2003

REACTIONS (34)
  - Haemorrhagic ovarian cyst [Unknown]
  - Pulmonary embolism [Recovered/Resolved]
  - Deep vein thrombosis [Unknown]
  - Off label use [Unknown]
  - Ovarian cyst [Unknown]
  - Tonsillar disorder [Unknown]
  - Bartholin^s cyst [Unknown]
  - Cervical dysplasia [Unknown]
  - Breast pain [Unknown]
  - Road traffic accident [Unknown]
  - Muscle strain [Unknown]
  - Back pain [Unknown]
  - Dysfunctional uterine bleeding [Unknown]
  - Overweight [Unknown]
  - Vaginal discharge [Unknown]
  - Inappropriate schedule of drug administration [Unknown]
  - Neck pain [Unknown]
  - Depression [Unknown]
  - Constipation [Unknown]
  - Appendicitis [Unknown]
  - Incorrect drug administration duration [Recovered/Resolved]
  - Chest pain [Unknown]
  - Bronchospasm [Unknown]
  - Bronchitis [Unknown]
  - Pleurisy [Unknown]
  - Anxiety [Unknown]
  - Irritable bowel syndrome [Unknown]
  - Upper respiratory tract infection [Recovering/Resolving]
  - Antiphospholipid antibodies positive [Unknown]
  - Pneumonia [Unknown]
  - Chest pain [Unknown]
  - Tonsillectomy [Unknown]
  - Adenoidectomy [Unknown]
  - Loop electrosurgical excision procedure [Unknown]
